FAERS Safety Report 24047104 (Version 1)
Quarter: 2024Q3

REPORT INFORMATION
  Report Type: Spontaneous
  Country: US (occurrence: None)
  Receive Date: 20240703
  Receipt Date: 20240703
  Transmission Date: 20241016
  Serious: Yes (Other)
  Sender: Public
  Company Number: None

PATIENT
  Age: 52 Year

DRUGS (1)
  1. TALTZ [Suspect]
     Active Substance: IXEKIZUMAB
     Dosage: OTHER QUANTITY : 80MG (1ML);?FREQUENCY : MONTHLY;?
     Route: 058
     Dates: start: 20240219, end: 20240702

REACTIONS (1)
  - Urticaria [None]
